FAERS Safety Report 17438831 (Version 1)
Quarter: 2020Q1

REPORT INFORMATION
  Report Type: Spontaneous
  Country: ES (occurrence: ES)
  Receive Date: 20200220
  Receipt Date: 20200220
  Transmission Date: 20200409
  Serious: Yes (Life-Threatening, Hospitalization)
  Sender: FDA-Public Use
  Company Number: ES-TEVA-2020-ES-1187973

PATIENT
  Age: 58 Year
  Sex: Male

DRUGS (3)
  1. FLUDARABINA [Suspect]
     Active Substance: FLUDARABINE PHOSPHATE
     Indication: LYMPHOCYTIC LYMPHOMA
     Dosage: 6 CYCLES, LAST SEPTEMBER 18, 19 AND 20
     Route: 042
     Dates: start: 20190423, end: 20190920
  2. CICLOFOSFAMIDA SANDOZ 1000 MG POLVO PARA SOLUCION INYECTABLE Y PARA PE [Interacting]
     Active Substance: CYCLOPHOSPHAMIDE
     Indication: LYMPHOCYTIC LYMPHOMA
     Dosage: 6 CYCLES, LAST SEPTEMBER 18, 19 AND 20
     Route: 042
     Dates: start: 20190423, end: 20190920
  3. RITUXIMAB (2814A) [Interacting]
     Active Substance: RITUXIMAB
     Indication: LYMPHOCYTIC LYMPHOMA
     Dosage: 6 CYCLES, LAST SEPTEMBER 18, 19 AND 20
     Route: 042
     Dates: start: 20190423, end: 20190920

REACTIONS (4)
  - Pyrexia [Recovered/Resolved]
  - Drug interaction [Unknown]
  - Diarrhoea [Recovered/Resolved]
  - Agranulocytosis [Recovered/Resolved]

NARRATIVE: CASE EVENT DATE: 20190930
